FAERS Safety Report 7508626-3 (Version None)
Quarter: 2011Q2

REPORT INFORMATION
  Report Type: 
  Country: None (occurrence: None)
  Receive Date: 20110527
  Receipt Date: 20110317
  Transmission Date: 20111010
  Serious: No
  Sender: FDA-Public Use
  Company Number: A0919502A

PATIENT
  Age: 24 Year
  Sex: Male
  Weight: 54.4 kg

DRUGS (2)
  1. FLOLAN [Suspect]
     Route: 042
     Dates: start: 20100716
  2. REVATIO [Concomitant]

REACTIONS (1)
  - ARTHRALGIA [None]
